FAERS Safety Report 4535175-7 (Version None)
Quarter: 2004Q4

REPORT INFORMATION
  Report Type: 
  Country: None (occurrence: None)
  Receive Date: 20041222
  Receipt Date: 20040914
  Transmission Date: 20050328
  Serious: No
  Sender: FDA-Public Use
  Company Number: US-BRISTOL-MYERS SQUIBB COMPANY-12701397

PATIENT
  Age: 49 Year
  Sex: Female
  Weight: 50 kg

DRUGS (3)
  1. DOVONEX [Suspect]
     Indication: DRY SKIN
     Route: 061
     Dates: end: 20040913
  2. DOVONEX [Suspect]
     Indication: PRURITUS
     Route: 061
     Dates: end: 20040913
  3. EVISTA [Concomitant]

REACTIONS (3)
  - ERYTHEMA [None]
  - RASH SCALY [None]
  - SKIN IRRITATION [None]
